FAERS Safety Report 17123541 (Version 1)
Quarter: 2019Q4

REPORT INFORMATION
  Report Type: Spontaneous
  Country: US (occurrence: US)
  Receive Date: 20191206
  Receipt Date: 20191206
  Transmission Date: 20200122
  Serious: No
  Sender: FDA-Public Use
  Company Number: US-JNJFOC-20191142781

PATIENT
  Age: 21 Year
  Sex: Female

DRUGS (2)
  1. SPRAVATO [Suspect]
     Active Substance: ESKETAMINE
     Indication: DEPRESSION
     Dosage: INITIAL DOSE
  2. SPRAVATO [Suspect]
     Active Substance: ESKETAMINE

REACTIONS (3)
  - Nasopharyngitis [Unknown]
  - Sedation complication [Unknown]
  - Dissociation [Unknown]

NARRATIVE: CASE EVENT DATE: 20191105
